FAERS Safety Report 5465123-7 (Version None)
Quarter: 2007Q3

REPORT INFORMATION
  Report Type: 
  Country: None (occurrence: None)
  Receive Date: 20070820
  Receipt Date: 20070424
  Transmission Date: 20080115
  Serious: No
  Sender: FDA-Public Use
  Company Number: WAES 0704USA05563

PATIENT
  Age: 60 Year
  Sex: Female

DRUGS (8)
  1. JANUVIA [Suspect]
     Indication: DIABETES MELLITUS
     Dosage: 100 MG/DAILY/PO   100 MG/DAILY/PO
     Route: 048
     Dates: start: 20070122, end: 20070209
  2. JANUVIA [Suspect]
     Indication: DIABETES MELLITUS
     Dosage: 100 MG/DAILY/PO   100 MG/DAILY/PO
     Route: 048
     Dates: start: 20070314, end: 20070319
  3. ATACAND [Concomitant]
  4. COREG [Concomitant]
  5. LASIX [Concomitant]
  6. ZOCOR [Concomitant]
  7. ASPIRIN [Concomitant]
  8. HYDROCHLOROTHIAZIDE [Concomitant]

REACTIONS (1)
  - VAGINAL LESION [None]
